FAERS Safety Report 6074225-6 (Version None)
Quarter: 2009Q1

REPORT INFORMATION
  Report Type: 
  Country: None (occurrence: None)
  Receive Date: 20090211
  Receipt Date: 20090203
  Transmission Date: 20090719
  Serious: Yes (Death, Hospitalization)
  Sender: FDA-Public Use
  Company Number: FR-AVENTIS-200811549FR

PATIENT
  Age: 42 Year
  Sex: Male

DRUGS (3)
  1. TAXOTERE [Suspect]
     Route: 042
     Dates: start: 20071210, end: 20071210
  2. CISPLATIN [Suspect]
     Route: 042
     Dates: start: 20071210, end: 20071210
  3. FLUOROURACIL [Suspect]
     Route: 042
     Dates: start: 20071210, end: 20071210

REACTIONS (4)
  - BONE MARROW FAILURE [None]
  - COLITIS [None]
  - PYREXIA [None]
  - SEPSIS [None]
